FAERS Safety Report 6175489-0 (Version None)
Quarter: 2009Q2

REPORT INFORMATION
  Report Type: 
  Country: None (occurrence: None)
  Receive Date: 20090429
  Receipt Date: 20090416
  Transmission Date: 20091009
  Serious: Yes (Other)
  Sender: FDA-Public Use
  Company Number: TPH-00175

PATIENT
  Age: 26 Year
  Sex: Female

DRUGS (1)
  1. TRIQUILAR [Suspect]
     Indication: CONTRACEPTION

REACTIONS (4)
  - BREAST SWELLING [None]
  - DIZZINESS [None]
  - NAUSEA [None]
  - SOMNOLENCE [None]
